FAERS Safety Report 22248985 (Version 1)
Quarter: 2023Q2

REPORT INFORMATION
  Report Type: Report from Study
  Country: US (occurrence: US)
  Receive Date: 20230425
  Receipt Date: 20230425
  Transmission Date: 20230722
  Serious: Yes (Hospitalization, Other)
  Sender: FDA-Public Use
  Company Number: US-002147023-NVSC2023US090366

PATIENT
  Age: 79 Year
  Sex: Male

DRUGS (1)
  1. ENTRESTO [Suspect]
     Active Substance: SACUBITRIL\VALSARTAN
     Indication: Product used for unknown indication
     Dosage: 1 DOSAGE FORM (24.26 MG), BID
     Route: 048
     Dates: start: 202212

REACTIONS (4)
  - Localised infection [Recovering/Resolving]
  - Diverticulitis [Recovered/Resolved]
  - Abdominal pain [Recovered/Resolved]
  - Weight bearing difficulty [Unknown]

NARRATIVE: CASE EVENT DATE: 20230301
